FAERS Safety Report 15124521 (Version 1)
Quarter: 2018Q3

REPORT INFORMATION
  Report Type: Spontaneous
  Country: US (occurrence: US)
  Receive Date: 20180613
  Receipt Date: 20180613
  Transmission Date: 20181010
  Serious: No
  Sender: FDA-Public Use
  Company Number: None

PATIENT
  Age: 63 Year
  Sex: Female

DRUGS (2)
  1. DAKLINZA [Suspect]
     Active Substance: DACLATASVIR
  2. RIBAVIRIN TAB 200MG [Suspect]
     Active Substance: RIBAVIRIN

REACTIONS (2)
  - Fatigue [None]
  - Dyspepsia [None]

NARRATIVE: CASE EVENT DATE: 20180613
